FAERS Safety Report 5005066-6 (Version None)
Quarter: 2006Q2

REPORT INFORMATION
  Report Type: 
  Country: None (occurrence: None)
  Receive Date: 20060518
  Receipt Date: 20051006
  Transmission Date: 20061013
  Serious: Yes (Hospitalization)
  Sender: FDA-Public Use
  Company Number: US-AMGEN-US177573

PATIENT
  Sex: Female
  Weight: 92.6 kg

DRUGS (17)
  1. ENBREL [Suspect]
     Indication: RHEUMATOID ARTHRITIS
     Route: 058
     Dates: start: 20041215, end: 20050927
  2. METHOTREXATE [Concomitant]
     Route: 048
     Dates: start: 20040901, end: 20051201
  3. PLAQUENIL [Concomitant]
     Route: 065
     Dates: start: 20031101
  4. CELEBREX [Concomitant]
     Route: 065
  5. FOLIC ACID [Concomitant]
     Route: 065
  6. MULTIVITAMIN [Concomitant]
     Route: 065
  7. CALCIUM GLUCONATE [Concomitant]
     Route: 065
  8. TIMOPTIC [Concomitant]
     Route: 065
  9. XALATAN [Concomitant]
     Route: 065
  10. ASPIRIN [Concomitant]
     Route: 065
  11. TPN [Concomitant]
     Route: 065
  12. MAGNESIUM CITRATE [Concomitant]
     Route: 065
  13. VITAMIN D [Concomitant]
     Route: 065
  14. GLUCOSAMINE [Concomitant]
     Route: 065
  15. CHONDROITIN [Concomitant]
     Route: 065
  16. TPN [Concomitant]
     Route: 065
  17. HERBAL SUPPLEMENT [Concomitant]
     Route: 065

REACTIONS (12)
  - ABNORMAL BEHAVIOUR [None]
  - APHASIA [None]
  - ARTHROPOD BITE [None]
  - BURSITIS [None]
  - CONGENITAL CEREBROVASCULAR ANOMALY [None]
  - GRAND MAL CONVULSION [None]
  - LOCALISED INFECTION [None]
  - MORTON'S NEUROMA [None]
  - MUSCULOSKELETAL STIFFNESS [None]
  - PARTIAL SEIZURES [None]
  - PATELLOFEMORAL PAIN SYNDROME [None]
  - ROTATOR CUFF SYNDROME [None]
